FAERS Safety Report 9851645 (Version 4)
Quarter: 2014Q3

REPORT INFORMATION
  Report Type: Report from Study
  Country: JP (occurrence: JP)
  Receive Date: 20140129
  Receipt Date: 20140826
  Transmission Date: 20150326
  Serious: Yes (Other)
  Sender: FDA-Public Use
  Company Number: JP-009507513-1401JPN013059

PATIENT
  Age: 63 Year
  Sex: Male
  Weight: 67 kg

DRUGS (15)
  1. PEGINTRON [Suspect]
     Active Substance: PEGINTERFERON ALFA-2B
     Dosage: 35 MICROGRAM, QW
     Route: 058
     Dates: start: 20121117, end: 20121123
  2. REBETOL [Suspect]
     Active Substance: RIBAVIRIN
     Dosage: 200 MG, QD
     Route: 048
     Dates: start: 20121020, end: 20130419
  3. PEGINTRON [Suspect]
     Active Substance: PEGINTERFERON ALFA-2B
     Dosage: 35 MICROGRAM, QW
     Route: 058
     Dates: start: 20120811, end: 20120817
  4. PEGINTRON [Suspect]
     Active Substance: PEGINTERFERON ALFA-2B
     Dosage: 30 MICROGRAM, QW
     Route: 058
     Dates: start: 20121124, end: 20130419
  5. PEGINTRON [Suspect]
     Active Substance: PEGINTERFERON ALFA-2B
     Indication: HEPATIC CIRRHOSIS
     Dosage: 30 MICROGRAM, QW
     Route: 058
     Dates: start: 20120706, end: 20120810
  6. PEGINTRON [Suspect]
     Active Substance: PEGINTERFERON ALFA-2B
     Dosage: 20 MICROGRAM, QW
     Route: 058
     Dates: start: 20130420, end: 20130608
  7. REBETOL [Suspect]
     Active Substance: RIBAVIRIN
     Indication: HEPATIC CIRRHOSIS
     Dosage: 800 MG, QD
     Route: 048
     Dates: start: 20120706, end: 20120720
  8. REBETOL [Suspect]
     Active Substance: RIBAVIRIN
     Dosage: 400 MG, QD
     Route: 048
     Dates: start: 20120901, end: 20121019
  9. GASTER [Concomitant]
     Active Substance: FAMOTIDINE
     Indication: GASTRITIS
     Dosage: 20 MG, QD
     Route: 048
     Dates: start: 20120706
  10. HALCION [Concomitant]
     Active Substance: TRIAZOLAM
     Indication: INSOMNIA
     Dosage: 0.25 MG, QD
     Route: 048
     Dates: start: 20120706
  11. SELBEX [Concomitant]
     Active Substance: TEPRENONE
     Indication: GASTRITIS
     Dosage: 50 MG, TID
     Route: 048
     Dates: start: 20120706
  12. REBETOL [Suspect]
     Active Substance: RIBAVIRIN
     Dosage: 600 MG, QD
     Route: 048
     Dates: start: 20120721, end: 20120831
  13. PEGINTRON [Suspect]
     Active Substance: PEGINTERFERON ALFA-2B
     Dosage: 30 MICROGRAM, QW
     Route: 058
     Dates: start: 20120818, end: 20121116
  14. REBETOL [Suspect]
     Active Substance: RIBAVIRIN
     Dosage: 100 MG, QD
     Route: 048
     Dates: start: 20130420, end: 20130608
  15. DIOVAN [Concomitant]
     Active Substance: VALSARTAN
     Indication: HYPERTENSION
     Dosage: 80 MG, QD
     Route: 048
     Dates: start: 20120706

REACTIONS (19)
  - Palpitations [Recovering/Resolving]
  - Pruritus [Recovering/Resolving]
  - White blood cell count decreased [Recovering/Resolving]
  - Anaemia [Recovering/Resolving]
  - Depression [Recovering/Resolving]
  - Dyspnoea [Recovering/Resolving]
  - Platelet count decreased [Recovering/Resolving]
  - Malaise [Recovering/Resolving]
  - Red blood cell count decreased [Recovering/Resolving]
  - Epistaxis [Recovering/Resolving]
  - Dermatitis [Recovering/Resolving]
  - Retinopathy [Unknown]
  - Affect lability [Recovering/Resolving]
  - Dizziness [Recovering/Resolving]
  - Deafness [Unknown]
  - Haemoglobin decreased [Recovered/Resolved]
  - Chills [Recovered/Resolved]
  - Pyrexia [Recovered/Resolved]
  - Decreased appetite [Recovered/Resolved]

NARRATIVE: CASE EVENT DATE: 20120706
